FAERS Safety Report 6432019-3 (Version None)
Quarter: 2009Q4

REPORT INFORMATION
  Report Type: 
  Country: None (occurrence: None)
  Receive Date: 20091109
  Receipt Date: 20091029
  Transmission Date: 20100525
  Serious: Yes (Death, Hospitalization)
  Sender: FDA-Public Use
  Company Number: FR-JNJFOC-20091003729

PATIENT
  Age: 64 Year
  Sex: Female
  Weight: 60 kg

DRUGS (3)
  1. REMICADE [Suspect]
     Indication: GUTTATE PSORIASIS
     Route: 042
     Dates: start: 20090909, end: 20090909
  2. DERMOVAL [Concomitant]
     Indication: GUTTATE PSORIASIS
  3. SEROPLEX [Concomitant]
     Indication: GUTTATE PSORIASIS
     Route: 048

REACTIONS (4)
  - ACUTE RESPIRATORY DISTRESS SYNDROME [None]
  - BACTERIAL TEST POSITIVE [None]
  - LUNG DISORDER [None]
  - RESPIRATORY MONILIASIS [None]
